FAERS Safety Report 14785804 (Version 2)
Quarter: 2018Q3

REPORT INFORMATION
  Report Type: Spontaneous
  Country: US (occurrence: US)
  Receive Date: 20180420
  Receipt Date: 20180709
  Transmission Date: 20181010
  Serious: No
  Sender: FDA-Public Use
  Company Number: US-PFIZER INC-2018160573

PATIENT
  Age: 11 Year
  Sex: Male

DRUGS (3)
  1. DAPTOMYCIN. [Suspect]
     Active Substance: DAPTOMYCIN
     Indication: ARTHRITIS BACTERIAL
  2. NORMAL SALINE [Concomitant]
     Active Substance: SODIUM CHLORIDE
     Indication: FLUID REPLACEMENT
     Dosage: UNK
  3. DAPTOMYCIN. [Suspect]
     Active Substance: DAPTOMYCIN
     Indication: ARTHRITIS INFECTIVE
     Dosage: 260 MG, 1X/DAY (ONCE EVERY 24 HOURS; 8:00 PM)
     Route: 042
     Dates: start: 20180415, end: 20180430

REACTIONS (3)
  - Cyanosis [Recovered/Resolved]
  - Respiratory rate increased [Recovered/Resolved]
  - Chills [Recovered/Resolved]

NARRATIVE: CASE EVENT DATE: 20180415
